FAERS Safety Report 14214743 (Version 1)
Quarter: 2017Q4

REPORT INFORMATION
  Report Type: Spontaneous
  Country: US (occurrence: US)
  Receive Date: 20171122
  Receipt Date: 20171122
  Transmission Date: 20180321
  Serious: No
  Sender: FDA-Public Use
  Company Number: US-ROCHE-1981689

PATIENT

DRUGS (4)
  1. ACTIVASE [Suspect]
     Active Substance: ALTEPLASE
     Indication: EMPYEMA
     Route: 034
  2. PULMOZYME [Suspect]
     Active Substance: DORNASE ALFA
     Indication: EMPYEMA
  3. ACTIVASE [Suspect]
     Active Substance: ALTEPLASE
     Indication: PLEURAL EFFUSION
  4. PULMOZYME [Suspect]
     Active Substance: DORNASE ALFA
     Indication: PLEURAL EFFUSION
     Route: 034

REACTIONS (3)
  - No adverse event [Unknown]
  - Off label use [Unknown]
  - Intentional product use issue [Unknown]
